FAERS Safety Report 19587229 (Version 3)
Quarter: 2021Q3

REPORT INFORMATION
  Report Type: Spontaneous
  Country: US (occurrence: US)
  Receive Date: 20210721
  Receipt Date: 20210917
  Transmission Date: 20211014
  Serious: No
  Sender: FDA-Public Use
  Company Number: US-ALNYLAM PHARMACEUTICALS, INC.-ALN-2021-001627

PATIENT

DRUGS (2)
  1. OXLUMO [Suspect]
     Active Substance: LUMASIRAN
     Indication: PRIMARY HYPEROXALURIA
     Dosage: 113 MILLIGRAM (113 MG OR 0.6 ML)
     Route: 065
     Dates: start: 20210327
  2. PYRIDOXINE [Concomitant]
     Active Substance: PYRIDOXINE
     Indication: HYPEROXALURIA
     Dosage: 100 MILLIGRAM, BID
     Route: 065
     Dates: start: 2019

REACTIONS (2)
  - Inappropriate schedule of product administration [Unknown]
  - Drug ineffective [Unknown]
